FAERS Safety Report 8220902-8 (Version None)
Quarter: 2012Q1

REPORT INFORMATION
  Report Type: 
  Country: None (occurrence: None)
  Receive Date: 20120319
  Receipt Date: 20120312
  Transmission Date: 20120608
  Serious: Yes (Other)
  Sender: FDA-Public Use
  Company Number: US-JNJFOC-20120304021

PATIENT
  Age: 60 Year
  Sex: Female
  Weight: 95.26 kg

DRUGS (2)
  1. LIPITOR [Concomitant]
     Route: 065
  2. SODIUM FLUORIDE F 18 [Suspect]
     Indication: DENTAL CARIES
     Route: 048
     Dates: start: 20120201, end: 20120225

REACTIONS (3)
  - DYSGEUSIA [None]
  - GLOSSODYNIA [None]
  - EXPIRED DRUG ADMINISTERED [None]
